FAERS Safety Report 10028915 (Version 3)
Quarter: 2014Q2

REPORT INFORMATION
  Report Type: Spontaneous
  Country: HU (occurrence: HU)
  Receive Date: 20140321
  Receipt Date: 20140414
  Transmission Date: 20141212
  Serious: Yes (Hospitalization)
  Sender: FDA-Public Use
  Company Number: HU-ELI_LILLY_AND_COMPANY-HU201402008190

PATIENT
  Age: 71 Year
  Sex: Female

DRUGS (6)
  1. ZYPADHERA [Suspect]
     Indication: SCHIZOPHRENIA, PARANOID TYPE
     Dosage: 300 MG, UNKNOWN
     Route: 030
     Dates: start: 2012, end: 20140221
  2. AMLODIPINE [Concomitant]
     Indication: PRODUCT USED FOR UNKNOWN INDICATION
     Dosage: 5MG, 2X1
     Route: 048
  3. FERRO-FOLGAMMA                     /01256801/ [Concomitant]
     Indication: PRODUCT USED FOR UNKNOWN INDICATION
     Dosage: 3X1, UNKNOWN
  4. BISOBLOC [Concomitant]
     Indication: PRODUCT USED FOR UNKNOWN INDICATION
     Dosage: 5MG TAB/DAILY
  5. ASTRIX [Concomitant]
     Indication: PRODUCT USED FOR UNKNOWN INDICATION
     Dosage: 1 CAP/DAILY
  6. NITROMINT [Concomitant]
     Indication: PRODUCT USED FOR UNKNOWN INDICATION
     Dosage: 2X1, UNK

REACTIONS (3)
  - Altered state of consciousness [Unknown]
  - Glomerular filtration rate [Unknown]
  - Blood creatinine increased [Unknown]
